FAERS Safety Report 10426387 (Version 2)
Quarter: 2016Q2

REPORT INFORMATION
  Report Type: Spontaneous
  Country: US (occurrence: US)
  Receive Date: 20140903
  Receipt Date: 20160609
  Transmission Date: 20160815
  Serious: No
  Sender: FDA-Public Use
  Company Number: US-JNJFOC-20140827120

PATIENT
  Age: 13 Year
  Sex: Male

DRUGS (2)
  1. RISPERDAL [Suspect]
     Active Substance: RISPERIDONE
     Indication: AUTISM
     Route: 048
     Dates: start: 2013, end: 20131205
  2. RISPERDAL [Suspect]
     Active Substance: RISPERIDONE
     Indication: AUTISM
     Dosage: 1.00-1.75 MG
     Route: 048
     Dates: start: 20080603, end: 20131205

REACTIONS (4)
  - Galactorrhoea [Not Recovered/Not Resolved]
  - Abnormal weight gain [Not Recovered/Not Resolved]
  - Gynaecomastia [Not Recovered/Not Resolved]
  - Hyperprolactinaemia [Not Recovered/Not Resolved]

NARRATIVE: CASE EVENT DATE: 20140730
